FAERS Safety Report 4733258-X (Version None)
Quarter: 2005Q3

REPORT INFORMATION
  Report Type: 
  Country: None (occurrence: None)
  Receive Date: 20050802
  Receipt Date: 20050719
  Transmission Date: 20060218
  Serious: Yes (Hospitalization)
  Sender: FDA-Public Use
  Company Number: 2005S1004634

PATIENT
  Age: 81 Year
  Sex: Female
  Weight: 63.5036 kg

DRUGS (10)
  1. FENTANYL [Suspect]
     Indication: BACK PAIN
     Dosage: SEE IMAGE
     Dates: start: 20050401, end: 20050605
  2. FENTANYL [Suspect]
     Indication: BACK PAIN
     Dosage: SEE IMAGE
     Dates: start: 20050605, end: 20050607
  3. FENTANYL [Suspect]
     Indication: BACK PAIN
     Dosage: 50 MCG/HR;Q3D;TDER
     Dates: start: 20050607, end: 20050601
  4. NIFEDIPINE [Concomitant]
  5. HYDROXYCHLOROQUINE SULFATE [Concomitant]
  6. .... [Concomitant]
  7. ALENDRONATE SODIUM [Concomitant]
  8. ESOMEPRAZOLE MAGNESIUM [Concomitant]
  9. CALCIUM GLUCONATE [Concomitant]
  10. PARACETAMOL/HYDROCODONE BITARTRATE [Concomitant]

REACTIONS (6)
  - CEREBROVASCULAR ACCIDENT [None]
  - HYPOAESTHESIA [None]
  - MENTAL IMPAIRMENT [None]
  - PANIC REACTION [None]
  - SOMNOLENCE [None]
  - TREMOR [None]
